FAERS Safety Report 7509882-8 (Version None)
Quarter: 2011Q2

REPORT INFORMATION
  Report Type: 
  Country: None (occurrence: None)
  Receive Date: 20110527
  Receipt Date: 20110517
  Transmission Date: 20111010
  Serious: Yes (Death, Disabling, Other)
  Sender: FDA-Public Use
  Company Number: JP-CELGENEUS-087-50794-11043084

PATIENT
  Sex: Male

DRUGS (10)
  1. ZOSYN [Concomitant]
     Dosage: 4.5 GRAM
     Route: 051
     Dates: start: 20110328, end: 20110402
  2. BARACLUDE [Concomitant]
     Dosage: .5 MILLIGRAM
     Route: 048
     Dates: start: 20110105, end: 20110425
  3. MAXIPIME [Concomitant]
     Dosage: 1 GRAM
     Route: 065
     Dates: start: 20110402, end: 20110404
  4. ITRACONAZOLE [Concomitant]
     Dosage: 200 MILLIGRAM
     Route: 048
     Dates: start: 20110105, end: 20110425
  5. LEVOFLOXACIN [Concomitant]
     Dosage: 500 MILLIGRAM
     Route: 048
     Dates: start: 20110105, end: 20110425
  6. VIDAZA [Suspect]
     Dosage: 75 MILLIGRAM/SQ. METER
     Route: 058
     Dates: start: 20110324, end: 20110330
  7. VIDAZA [Suspect]
     Dosage: 75 MILLIGRAM/SQ. METER
     Route: 058
     Dates: start: 20110331, end: 20110406
  8. RECOMODULIN [Concomitant]
     Route: 065
  9. KYTRIL [Concomitant]
     Dosage: 3 MILLIGRAM
     Route: 065
     Dates: start: 20110331, end: 20110406
  10. FAMOTIDINE [Concomitant]
     Dosage: 40 MILLIGRAM
     Route: 048
     Dates: start: 20110105, end: 20110425

REACTIONS (4)
  - VENOOCCLUSIVE LIVER DISEASE [None]
  - GENERALISED OEDEMA [None]
  - ACUTE RESPIRATORY DISTRESS SYNDROME [None]
  - RENAL FAILURE [None]
